FAERS Safety Report 21002478 (Version 3)
Quarter: 2022Q3

REPORT INFORMATION
  Report Type: Report from Study
  Country: IT (occurrence: IT)
  Receive Date: 20220624
  Receipt Date: 20220808
  Transmission Date: 20221027
  Serious: Yes (Death, Hospitalization)
  Sender: FDA-Public Use
  Company Number: IT-IMMUNOCORE, LTD.-2022-IMC-000941

PATIENT

DRUGS (1)
  1. TEBENTAFUSP [Suspect]
     Active Substance: TEBENTAFUSP
     Indication: Metastatic ocular melanoma
     Dosage: 20 MICROGRAM, SINGLE, C1D1
     Dates: start: 20220617, end: 20220617

REACTIONS (5)
  - Malignant neoplasm progression [Fatal]
  - Dyspnoea [Fatal]
  - Pain [Unknown]
  - Pyrexia [Unknown]
  - Vomiting [Unknown]

NARRATIVE: CASE EVENT DATE: 20220617
